FAERS Safety Report 4476528-5 (Version None)
Quarter: 2004Q4

REPORT INFORMATION
  Report Type: 
  Country: None (occurrence: None)
  Receive Date: 20041012
  Receipt Date: 20040928
  Transmission Date: 20050328
  Serious: Yes (Hospitalization)
  Sender: FDA-Public Use
  Company Number: S04-USA-06318-01

PATIENT
  Age: 75 Year
  Sex: Female

DRUGS (21)
  1. NAMENDA [Suspect]
     Indication: DEMENTIA ALZHEIMER'S TYPE
     Dosage: 5 MG QD PO
     Route: 048
     Dates: start: 20040201, end: 20040101
  2. NAMENDA [Suspect]
     Indication: DEMENTIA ALZHEIMER'S TYPE
     Dosage: 10 MG QD PO
     Route: 048
     Dates: start: 20040101, end: 20040101
  3. NAMENDA [Suspect]
     Indication: DEMENTIA ALZHEIMER'S TYPE
     Dosage: 15 MG QD PO
     Route: 048
     Dates: start: 20040101, end: 20040101
  4. NAMENDA [Suspect]
     Indication: DEMENTIA ALZHEIMER'S TYPE
     Dosage: 20 MG QD PO
     Route: 048
     Dates: start: 20040101, end: 20040101
  5. NAMENDA [Suspect]
     Indication: DEMENTIA ALZHEIMER'S TYPE
     Dosage: 5 MG QD PO
     Route: 048
     Dates: start: 20040601, end: 20040101
  6. NAMENDA [Suspect]
     Indication: DEMENTIA ALZHEIMER'S TYPE
     Dosage: 5 MG QOD PO
     Route: 048
     Dates: start: 20040101, end: 20040801
  7. ARICEPT [Concomitant]
  8. MONOPRIL [Concomitant]
  9. 50/50 HUMALIN INSULIN [Concomitant]
  10. ATENOLOL [Concomitant]
  11. DEMADEX [Concomitant]
  12. ALLOPURINOL [Concomitant]
  13. POTASSIUM CHLORIDE [Concomitant]
  14. GINKO BILOBA [Concomitant]
  15. MULTI-VITAMIN [Concomitant]
  16. VITAMIN B COMPLEX CAP [Concomitant]
  17. VITAMIN C [Concomitant]
  18. VITAMIN E [Concomitant]
  19. LYCOPENE [Concomitant]
  20. COLON BACILLUS [Concomitant]
  21. CIPRO [Concomitant]

REACTIONS (9)
  - ABNORMAL BEHAVIOUR [None]
  - AGITATION [None]
  - BELLIGERENCE [None]
  - CONTUSION [None]
  - FACIAL BONES FRACTURE [None]
  - FALL [None]
  - GENERALISED OEDEMA [None]
  - INJURY [None]
  - SOMNOLENCE [None]
